FAERS Safety Report 21599181 (Version 1)
Quarter: 2022Q4

REPORT INFORMATION
  Report Type: Spontaneous
  Country: US (occurrence: None)
  Receive Date: 20221114
  Receipt Date: 20221114
  Transmission Date: 20230112
  Serious: Yes (Other)
  Sender: FDA-Public Use
  Company Number: None

PATIENT
  Age: 48 Year
  Sex: Female

DRUGS (7)
  1. ALECENSA [Suspect]
     Active Substance: ALECTINIB HYDROCHLORIDE
     Indication: Hypothyroidism
     Dosage: FREQUENCY : TWICE A DAY;  WITH MEALS?
     Route: 048
     Dates: start: 20210424
  2. EUTHYROX [Concomitant]
     Active Substance: LEVOTHYROXINE SODIUM
  3. LEVOXYL [Concomitant]
     Active Substance: LEVOTHYROXINE SODIUM
  4. LINZESS [Concomitant]
     Active Substance: LINACLOTIDE
  5. METOCLOPRAMIDE [Concomitant]
     Active Substance: METOCLOPRAMIDE
  6. ONDANSETRON [Concomitant]
     Active Substance: ONDANSETRON
  7. PREDNISONE [Concomitant]
     Active Substance: PREDNISONE

REACTIONS (1)
  - Liver function test increased [None]

NARRATIVE: CASE EVENT DATE: 20221107
